FAERS Safety Report 5809734-5 (Version None)
Quarter: 2008Q3

REPORT INFORMATION
  Report Type: 
  Country: None (occurrence: None)
  Receive Date: 20080714
  Receipt Date: 20080714
  Transmission Date: 20090109
  Serious: Yes (Death)
  Sender: FDA-Public Use
  Company Number: None

PATIENT
  Age: 15 Year
  Sex: Female
  Weight: 52.1637 kg

DRUGS (1)
  1. DIPRIVAN [Suspect]
     Indication: HEAD INJURY
     Dosage: 5.3 MG 6 1/2 DAYS
     Dates: start: 20011120, end: 20011226

REACTIONS (2)
  - CARDIAC ARREST [None]
  - INCORRECT DOSE ADMINISTERED [None]
